FAERS Safety Report 7706068-9 (Version None)
Quarter: 2011Q3

REPORT INFORMATION
  Report Type: 
  Country: None (occurrence: None)
  Receive Date: 20110824
  Receipt Date: 20110822
  Transmission Date: 20111222
  Serious: Yes (Hospitalization)
  Sender: FDA-Public Use
  Company Number: DE-PFIZER INC-2011193677

PATIENT
  Age: 52 Year
  Sex: Male
  Weight: 110.8 kg

DRUGS (6)
  1. SOMATROPIN [Suspect]
     Indication: HYPOPITUITARISM
  2. MINIRIN [Concomitant]
     Indication: ANTIDIURETIC HORMONE ABNORMALITY
     Dosage: 0.1 ML, 1X/DAY
     Dates: start: 20061123
  3. HYDROCORTISONE [Concomitant]
     Indication: BLOOD CORTICOTROPHIN DECREASED
     Dosage: 25 MG, 1X/DAY
     Dates: start: 20061005
  4. JANUVIA [Concomitant]
     Indication: DIABETES MELLITUS
     Dosage: 100 MG, 1X/DAY
     Dates: start: 20090519
  5. LEVOTHYROXINE SODIUM [Concomitant]
     Indication: PRIMARY HYPOTHYROIDISM
     Dosage: 150 UG, 1X/DAY
     Dates: start: 20070115
  6. NEBIDO [Concomitant]
     Indication: HYPOGONADISM
     Dosage: 1000 MG, EVERY 12 WEEKS
     Dates: start: 20061005

REACTIONS (1)
  - EPISTAXIS [None]
